FAERS Safety Report 17156167 (Version 1)
Quarter: 2019Q4

REPORT INFORMATION
  Report Type: Spontaneous
  Country: CA (occurrence: CA)
  Receive Date: 20191216
  Receipt Date: 20191216
  Transmission Date: 20200122
  Serious: Yes (Other)
  Sender: FDA-Public Use
  Company Number: CA-PFIZER INC-2019536479

PATIENT

DRUGS (1)
  1. PROPOFOL. [Suspect]
     Active Substance: PROPOFOL
     Indication: SEDATIVE THERAPY
     Dosage: UNK

REACTIONS (4)
  - Anaesthetic complication [Unknown]
  - Incorrect dose administered [Unknown]
  - Device leakage [Unknown]
  - Premature recovery from anaesthesia [Unknown]
